FAERS Safety Report 26157120 (Version 1)
Quarter: 2025Q4

REPORT INFORMATION
  Report Type: Spontaneous
  Country: EU (occurrence: EU)
  Receive Date: 20251215
  Receipt Date: 20251215
  Transmission Date: 20260118
  Serious: Yes (Hospitalization)
  Sender: TEVA
  Company Number: None

PATIENT
  Age: 75 Year
  Sex: Male
  Weight: 65 kg

DRUGS (2)
  1. KETOPROFEN [Suspect]
     Active Substance: KETOPROFEN
     Indication: Tonsillitis
     Route: 048
     Dates: end: 20250821
  2. AUGMENTIN [Suspect]
     Active Substance: AMOXICILLIN\CLAVULANATE POTASSIUM
     Indication: Tonsillitis
     Dosage: 1 G/125 MG ADULTS, POWDER FOR ORAL SUSPENSION IN SACHET-DOSE (AMOXICILLIN/CLAVULANIC ACID RATIO: ...
     Route: 048
     Dates: start: 20250821, end: 20250827

REACTIONS (2)
  - Vascular purpura [Recovering/Resolving]
  - Henoch-Schonlein purpura [Recovering/Resolving]

NARRATIVE: CASE EVENT DATE: 20250823
